FAERS Safety Report 9376153 (Version 1)
Quarter: 2013Q3

REPORT INFORMATION
  Report Type: Spontaneous
  Country: CN (occurrence: CN)
  Receive Date: 20130701
  Receipt Date: 20130701
  Transmission Date: 20140515
  Serious: Yes (Other)
  Sender: FDA-Public Use
  Company Number: CN-ROCHE-1207929

PATIENT
  Age: 50 Year
  Sex: Female

DRUGS (2)
  1. XELODA [Suspect]
     Indication: BREAST CANCER
     Route: 048
     Dates: start: 20130322
  2. VITAMIN B6 [Concomitant]
     Indication: BREAST CANCER
     Route: 048
     Dates: start: 20130322

REACTIONS (12)
  - Palpitations [Unknown]
  - Extrasystoles [Unknown]
  - Dry skin [Recovering/Resolving]
  - Pruritus [Recovering/Resolving]
  - Abdominal discomfort [Recovering/Resolving]
  - Asthenia [Not Recovered/Not Resolved]
  - Erythema [Recovering/Resolving]
  - Local swelling [Recovering/Resolving]
  - Pain in extremity [Recovering/Resolving]
  - Onychoclasis [Not Recovered/Not Resolved]
  - White blood cell count decreased [Unknown]
  - Skin discolouration [Not Recovered/Not Resolved]
